FAERS Safety Report 4862185-2 (Version None)
Quarter: 2005Q4

REPORT INFORMATION
  Report Type: 
  Country: None (occurrence: None)
  Receive Date: 20051201
  Receipt Date: 20050824
  Transmission Date: 20060501
  Serious: No
  Sender: FDA-Public Use
  Company Number: 2005PV001541

PATIENT
  Age: 61 Year
  Sex: Female
  Weight: 78.4723 kg

DRUGS (14)
  1. BYETTA [Suspect]
     Indication: DIABETES MELLITUS NON-INSULIN-DEPENDENT
     Dosage: 5 MCG; BID; SC
     Route: 058
     Dates: start: 20050823
  2. GLUCOPHAGE XR [Concomitant]
  3. LANTUS [Concomitant]
  4. DIGOXIN [Concomitant]
  5. WARFARIN [Concomitant]
  6. COREG [Concomitant]
  7. CLONIDINE [Concomitant]
  8. WELLBUTRIN [Concomitant]
  9. COZAAR [Concomitant]
  10. NORVASC [Concomitant]
  11. ALPRAZOLAM [Concomitant]
  12. ZANTAC [Concomitant]
  13. ALBUTEROL SULFATE AUTOHALER [Concomitant]
  14. FOSAMAX [Concomitant]

REACTIONS (2)
  - ABDOMINAL PAIN UPPER [None]
  - BLOOD GLUCOSE INCREASED [None]
